FAERS Safety Report 9499513 (Version 1)
Quarter: 2013Q1

REPORT INFORMATION
  Report Type: Spontaneous
  Country: US (occurrence: None)
  Receive Date: 20130107
  Receipt Date: 20130107
  Transmission Date: 20140127
  Serious: No
  Sender: FDA-Public Use
  Company Number: PHEH2012US020573

PATIENT
  Age: 36 Year
  Sex: Female

DRUGS (14)
  1. GILENYA [Suspect]
     Indication: MULTIPLE SCLEROSIS
     Route: 048
     Dates: start: 20111123, end: 20121011
  2. CLONAZEPAM (CLONAZEPAM) (CLONAZEPAM) [Concomitant]
  3. CYMBALTA (DULOXETINE HYDROCHLORIDE) [Concomitant]
  4. DIAZEPAM (DIAZEPAM) [Concomitant]
  5. LAMOTRIGINE (LAMOTRIGINE) [Concomitant]
  6. LANSOPRAZOLE (LANSOPRAZOLE) [Concomitant]
  7. MODAFINIL (MODAFINIL) [Concomitant]
  8. MULTIVITAMINS (ASCORBIC ACID, ERGOCALCIFEROL, FOLIC ACID, NICOTINAMIDE, PANTHENOL, RETINOL, RIBOFLAVIN, THIAMINE HYDROCHLORIDE) [Concomitant]
  9. NAPROXEN SODIUM (NAPROXEN SODIUIM) [Concomitant]
  10. ACETAMINOPHEN W/OXYCODONE (OXYCODONE HYDROCHLORIDE, PARACETAMOL) [Concomitant]
  11. PROVENTIL HFA (SALBUTAMOL) [Concomitant]
  12. SEROQUEL XR (QUETIAPINE FUMARATE) [Concomitant]
  13. VITAMIN D (ERGOCALCIFEROL) [Concomitant]
  14. ZOMIG (ZOLMITRIPTAN) [Concomitant]

REACTIONS (7)
  - Dyskinesia [None]
  - Speech disorder [None]
  - Neuralgia [None]
  - Hypoaesthesia [None]
  - Hypoaesthesia [None]
  - Maternal exposure during pregnancy [None]
  - Pregnancy [None]
